FAERS Safety Report 10588153 (Version 3)
Quarter: 2015Q2

REPORT INFORMATION
  Report Type: Spontaneous
  Country: US (occurrence: US)
  Receive Date: 20141117
  Receipt Date: 20150625
  Transmission Date: 20150821
  Serious: Yes (Disabling, Other)
  Sender: FDA-Public Use
  Company Number: US-009507513-1411USA006774

PATIENT
  Sex: Female

DRUGS (4)
  1. FOSAMAX [Suspect]
     Active Substance: ALENDRONATE SODIUM
     Indication: OSTEOPOROSIS
     Dosage: 70 MG, UNK
     Route: 048
  2. FOSAMAX [Suspect]
     Active Substance: ALENDRONATE SODIUM
     Indication: OSTEOPENIA
  3. FOSAMAX [Suspect]
     Active Substance: ALENDRONATE SODIUM
     Indication: PROPHYLAXIS
     Dosage: UNK
     Route: 048
     Dates: start: 1998
  4. ALENDRONATE SODIUM. [Suspect]
     Active Substance: ALENDRONATE SODIUM
     Dosage: 70 MG, QW
     Route: 048
     Dates: end: 200509

REACTIONS (23)
  - Osteoarthritis [Unknown]
  - Bunion operation [Unknown]
  - Foot fracture [Unknown]
  - Fracture nonunion [Unknown]
  - Femur fracture [Unknown]
  - Neuropathy peripheral [Unknown]
  - Foot deformity [Unknown]
  - Arthritis [Unknown]
  - Depression [Unknown]
  - Fracture nonunion [Unknown]
  - Intramedullary rod insertion [Unknown]
  - Low turnover osteopathy [Unknown]
  - Breast cancer [Unknown]
  - Emotional distress [Unknown]
  - Depression [Not Recovered/Not Resolved]
  - Tooth extraction [Unknown]
  - Ankle operation [Unknown]
  - Intramedullary rod insertion [Unknown]
  - Bunion operation [Unknown]
  - Gastrooesophageal reflux disease [Unknown]
  - Femur fracture [Unknown]
  - Hand fracture [Unknown]
  - Ankle operation [Unknown]

NARRATIVE: CASE EVENT DATE: 1999
